FAERS Safety Report 21967980 (Version 1)
Quarter: 2023Q1

REPORT INFORMATION
  Report Type: Spontaneous
  Country: US (occurrence: US)
  Receive Date: 20230208
  Receipt Date: 20230208
  Transmission Date: 20230418
  Serious: Yes (Other)
  Sender: FDA-Public Use
  Company Number: US-SA-SAC20230208000375

PATIENT
  Age: 81 Year
  Sex: Male
  Weight: 61.235 kg

DRUGS (1)
  1. DUPIXENT [Suspect]
     Active Substance: DUPILUMAB
     Indication: Dermatitis atopic
     Dosage: 300 MG, QOW
     Route: 058
     Dates: start: 202301

REACTIONS (2)
  - Cataract [Not Recovered/Not Resolved]
  - Pruritus genital [Recovering/Resolving]

NARRATIVE: CASE EVENT DATE: 20230101
